FAERS Safety Report 5738028-1 (Version None)
Quarter: 2008Q2

REPORT INFORMATION
  Report Type: 
  Country: None (occurrence: None)
  Receive Date: 20080509
  Receipt Date: 20080423
  Transmission Date: 20081010
  Serious: Yes (Hospitalization)
  Sender: FDA-Public Use
  Company Number: GB-DEXPHARM-20080389

PATIENT
  Age: 50 Year
  Sex: Male

DRUGS (6)
  1. OMEPRAZOLE [Suspect]
  2. PHENYTOIN [Suspect]
     Indication: EPILEPSY
     Dosage: ^300 MG/DAY^ { 300 MG MILLIGRAM(S) }
  3. ATORVASTATIN CALCIUM [Concomitant]
  4. INSULIN [Concomitant]
  5. SPIRONOLACTONE [Concomitant]
  6. VITAMIN B COMPLEX CAP [Concomitant]

REACTIONS (10)
  - ANAEMIA MACROCYTIC [None]
  - CEREBELLAR SYNDROME [None]
  - CONVULSION [None]
  - DRUG INTERACTION [None]
  - DRUG TOXICITY [None]
  - DYSARTHRIA [None]
  - LIVER DISORDER [None]
  - NYSTAGMUS [None]
  - PROTHROMBIN TIME PROLONGED [None]
  - THROMBOCYTHAEMIA [None]
